FAERS Safety Report 4614139-9 (Version None)
Quarter: 2005Q1

REPORT INFORMATION
  Report Type: 
  Country: None (occurrence: None)
  Receive Date: 20050316
  Receipt Date: 20050308
  Transmission Date: 20050727
  Serious: Yes (Other)
  Sender: FDA-Public Use
  Company Number: 200510152BVD

PATIENT
  Age: 64 Year
  Sex: Male
  Weight: 102 kg

DRUGS (8)
  1. ASPIRIN [Suspect]
     Dosage: 100 MG, TOTAL DAILY, ORAL
     Route: 048
     Dates: start: 19990101, end: 20040530
  2. NEXIUM MUPS (ESOMEPRAZOLE) [Suspect]
     Dosage: 20 MG, TOTAL DAILY, ORAL
     Route: 048
     Dates: start: 19961001, end: 20040531
  3. NIFEDIPINE [Concomitant]
  4. ASPIRIN [Concomitant]
  5. LAXANTES FORTIOR [Concomitant]
  6. ALOE VERA SYRUP [Concomitant]
  7. KAMISTAD-GEL [Concomitant]
  8. HEPARIN [Concomitant]

REACTIONS (1)
  - THROMBOCYTOPENIA [None]
